FAERS Safety Report 4656809-2 (Version None)
Quarter: 2005Q2

REPORT INFORMATION
  Report Type: 
  Country: None (occurrence: None)
  Receive Date: 20050506
  Receipt Date: 20050420
  Transmission Date: 20051028
  Serious: Yes (Hospitalization)
  Sender: FDA-Public Use
  Company Number: US125278

PATIENT
  Age: 22 Year
  Sex: Female

DRUGS (4)
  1. ENBREL [Suspect]
     Indication: JUVENILE ARTHRITIS
     Dosage: 25 MG, 2 IN 1 WEEKS, SC
     Route: 058
     Dates: start: 20000101, end: 20030101
  2. METHOTREXATE [Concomitant]
  3. FOLIC ACID [Concomitant]
  4. ROFECOXIB [Concomitant]

REACTIONS (10)
  - ANTIBODY TEST POSITIVE [None]
  - CHROMATURIA [None]
  - GINGIVITIS [None]
  - LEUKOCYTOCLASTIC VASCULITIS [None]
  - LUPUS NEPHRITIS [None]
  - LUPUS-LIKE SYNDROME [None]
  - OEDEMA PERIPHERAL [None]
  - PETECHIAE [None]
  - PITTING OEDEMA [None]
  - PURPURA [None]
